FAERS Safety Report 24559929 (Version 1)
Quarter: 2024Q4

REPORT INFORMATION
  Report Type: Report from Study
  Country: US (occurrence: US)
  Receive Date: 20241029
  Receipt Date: 20241029
  Transmission Date: 20250114
  Serious: Yes (Hospitalization)
  Sender: MYLAN
  Company Number: US-MYLANLABS-2024M1097903

PATIENT
  Age: 15 Year
  Sex: Female

DRUGS (3)
  1. FENTANYL [Interacting]
     Active Substance: FENTANYL
     Indication: Fracture pain
     Dosage: 1.2 MICROGRAM/KILOGRAM
     Route: 065
  2. KETAMINE [Interacting]
     Active Substance: KETAMINE
     Indication: Sedative therapy
     Dosage: 1.2 MILLIGRAM/KILOGRAM
     Route: 065
  3. MORPHINE [Interacting]
     Active Substance: MORPHINE
     Indication: Fracture pain
     Dosage: 70 MICROGRAM/KILOGRAM
     Route: 065

REACTIONS (3)
  - Apnoea [Recovered/Resolved]
  - Drug interaction [Recovered/Resolved]
  - Unresponsive to stimuli [Recovered/Resolved]
